FAERS Safety Report 11149792 (Version 1)
Quarter: 2015Q2

REPORT INFORMATION
  Report Type: Spontaneous
  Country: GB (occurrence: GB)
  Receive Date: 20150529
  Receipt Date: 20150529
  Transmission Date: 20150821
  Serious: Yes (Other)
  Sender: FDA-Public Use
  Company Number: PHFR2015GB004106

PATIENT
  Sex: Female

DRUGS (1)
  1. ZOMETA [Suspect]
     Active Substance: ZOLEDRONIC ACID
     Indication: CREATININE RENAL CLEARANCE INCREASED
     Dosage: 4 MG
     Route: 042

REACTIONS (4)
  - Discomfort [Unknown]
  - Graft versus host disease [Unknown]
  - Paraesthesia [Unknown]
  - Off label use [Unknown]
